FAERS Safety Report 8163600-1 (Version None)
Quarter: 2012Q1

REPORT INFORMATION
  Report Type: 
  Country: None (occurrence: None)
  Receive Date: 20120224
  Receipt Date: 20120221
  Transmission Date: 20120608
  Serious: Yes (Other)
  Sender: FDA-Public Use
  Company Number: US-PFIZER INC-2012011086

PATIENT
  Sex: Female
  Weight: 105.67 kg

DRUGS (7)
  1. ZOLOFT [Suspect]
     Indication: BIPOLAR I DISORDER
     Dosage: 100 MG, 2X/DAY
     Route: 048
     Dates: start: 19990101
  2. ZOLOFT [Suspect]
     Dosage: 100 MG, 3X/DAY
     Route: 048
  3. MULTI-VITAMINS [Concomitant]
     Dosage: UNK
  4. ZOLOFT [Suspect]
     Dosage: 100 MG, UNK
     Route: 048
     Dates: end: 20021201
  5. ZOLOFT [Suspect]
     Indication: DEPRESSION
     Dosage: 100 MG, 3X/DAY
     Route: 048
     Dates: start: 19990101, end: 20020101
  6. CYMBALTA [Concomitant]
     Dosage: UNK
  7. SEROQUEL [Concomitant]
     Dosage: 300 MG, 1X/DAY

REACTIONS (19)
  - LEUKAEMIA [None]
  - BONE DISORDER [None]
  - NIGHT SWEATS [None]
  - CARDIAC DISORDER [None]
  - NAUSEA [None]
  - CONSTIPATION [None]
  - DIZZINESS [None]
  - SICKLE CELL ANAEMIA [None]
  - HALLUCINATION [None]
  - PSYCHOTIC DISORDER [None]
  - TRISMUS [None]
  - DYSGEUSIA [None]
  - MALAISE [None]
  - RENAL DISORDER [None]
  - MIGRAINE [None]
  - VAGINAL NEOPLASM [None]
  - ANEURYSM [None]
  - VISION BLURRED [None]
  - CHILLS [None]
